FAERS Safety Report 19362416 (Version 4)
Quarter: 2021Q3

REPORT INFORMATION
  Report Type: Report from Study
  Country: None (occurrence: CA)
  Receive Date: 20210603
  Receipt Date: 20210716
  Transmission Date: 20211014
  Serious: Yes (Death, Hospitalization, Other)
  Sender: FDA-Public Use
  Company Number: CA-ABBVIE-21K-028-3929519-00

PATIENT
  Age: 62 Year
  Sex: Male

DRUGS (2)
  1. LUPRON DEPOT [Suspect]
     Active Substance: LEUPROLIDE ACETATE
     Indication: PROSTATE CANCER
     Route: 030
     Dates: start: 20201220
  2. BICALUTAMIDE. [Concomitant]
     Active Substance: BICALUTAMIDE
     Indication: PROSTATE CANCER
     Route: 048
     Dates: start: 202003, end: 202004

REACTIONS (7)
  - Calcinosis [Unknown]
  - Osteolysis [Unknown]
  - Prostate cancer metastatic [Fatal]
  - Soft tissue mass [Unknown]
  - Metastases to bone [Unknown]
  - Urinary tract obstruction [Unknown]
  - Mucosal hypertrophy [Unknown]

NARRATIVE: CASE EVENT DATE: 20210531
